FAERS Safety Report 7303737-X (Version None)
Quarter: 2011Q1

REPORT INFORMATION
  Report Type: 
  Country: None (occurrence: None)
  Receive Date: 20110221
  Receipt Date: 20110215
  Transmission Date: 20110831
  Serious: Yes (Life-Threatening, Hospitalization)
  Sender: FDA-Public Use
  Company Number: GB-ASTRAZENECA-2011SE08687

PATIENT
  Age: 60 Year
  Sex: Female

DRUGS (7)
  1. DICLOFENAC [Suspect]
     Indication: ANALGESIC THERAPY
     Route: 048
     Dates: start: 20110207, end: 20110207
  2. AMITRIPTYLINE [Concomitant]
  3. BENDROFLUMETHIAZIDE [Concomitant]
  4. OMEPRAZOLE [Concomitant]
  5. SIMVASTATIN [Concomitant]
  6. LISINOPRIL [Suspect]
     Indication: HYPERTENSION
     Route: 048
     Dates: end: 20110207
  7. ASPIRIN [Concomitant]

REACTIONS (4)
  - SWELLING FACE [None]
  - ANGIOEDEMA [None]
  - DYSPNOEA [None]
  - PHARYNGEAL OEDEMA [None]
